FAERS Safety Report 5444594-6 (Version None)
Quarter: 2007Q3

REPORT INFORMATION
  Report Type: 
  Country: None (occurrence: None)
  Receive Date: 20070831
  Receipt Date: 20070823
  Transmission Date: 20080115
  Serious: Yes (Death)
  Sender: FDA-Public Use
  Company Number: 2007-03914

PATIENT
  Age: 71 Year
  Sex: Female

DRUGS (9)
  1. METHYLPREDNISOLONE 4MG TAB [Suspect]
     Indication: TEMPORAL ARTERITIS
     Dosage: SEE IMAGE
     Route: 048
  2. METHYLPREDNISOLONE 4MG TAB [Suspect]
     Indication: TEMPORAL ARTERITIS
     Dosage: SEE IMAGE
     Route: 048
  3. METHYLPREDNISOLONE 4MG TAB [Suspect]
     Indication: TEMPORAL ARTERITIS
     Dosage: SEE IMAGE
     Route: 048
  4. CALCIUM ACETATE [Suspect]
     Indication: OSTEOPOROSIS PROPHYLAXIS
     Dosage: 1000 MG, DAILY, ORAL
     Route: 048
  5. VITAMIN D [Suspect]
     Indication: OSTEOPOROSIS PROPHYLAXIS
     Dosage: 880 IE, DAILY, ORAL
     Route: 048
  6. FENPROCOUMON() [Suspect]
     Indication: DRUG USE FOR UNKNOWN INDICATION
     Dosage: ORAL
     Route: 048
  7. DIGOXIN [Concomitant]
  8. BISOPROLOL FUMARATE [Concomitant]
  9. ENALAPRIL MALEATE [Concomitant]

REACTIONS (4)
  - CALCIPHYLAXIS [None]
  - CANDIDA SEPSIS [None]
  - IMPAIRED HEALING [None]
  - NECROSIS [None]
